FAERS Safety Report 7325842-4 (Version None)
Quarter: 2011Q1

REPORT INFORMATION
  Report Type: 
  Country: None (occurrence: None)
  Receive Date: 20110302
  Receipt Date: 20110221
  Transmission Date: 20110831
  Serious: Yes (Other)
  Sender: FDA-Public Use
  Company Number: DE-AMGEN-DEUSP2011000073

PATIENT
  Age: 26 Year
  Sex: Male
  Weight: 80 kg

DRUGS (5)
  1. ENBREL [Suspect]
     Indication: PSORIASIS
     Dosage: 50 MG, 2X/WEEK
     Route: 058
     Dates: start: 20101125, end: 20101220
  2. ENBREL [Suspect]
     Dosage: 50 MG, WEEKLY
     Route: 058
     Dates: start: 20101221, end: 20110215
  3. ENBREL [Suspect]
     Dosage: 25 MG, 2X/WEEK
     Route: 058
     Dates: start: 20110216
  4. ADVANTAN [Concomitant]
     Indication: PSORIASIS
     Dosage: UNK
     Route: 061
  5. ECURAL [Concomitant]
     Indication: PSORIASIS
     Route: 061

REACTIONS (3)
  - PSORIASIS [None]
  - LYMPHOPENIA [None]
  - ROAD TRAFFIC ACCIDENT [None]
